FAERS Safety Report 10488501 (Version 1)
Quarter: 2014Q3

REPORT INFORMATION
  Report Type: Spontaneous
  Country: US (occurrence: None)
  Receive Date: 20140815
  Receipt Date: 20140815
  Transmission Date: 20150326
  Serious: Yes (Other)
  Sender: FDA-Public Use
  Company Number: ADR-2013-01629

PATIENT
  Sex: Male

DRUGS (3)
  1. MORPHINE [Suspect]
     Active Substance: MORPHINE
     Dosage: 14.460MG/DAY
  2. BUPIVACAINE [Suspect]
     Active Substance: BUPIVACAINE
     Dosage: 2.5305MG/DAY
  3. BACLOFEN INTRATHECAL [Suspect]
     Active Substance: BACLOFEN
     Dosage: 50.611MCG/DAY

REACTIONS (2)
  - Drug withdrawal syndrome [None]
  - Unevaluable event [None]
